FAERS Safety Report 18435145 (Version 1)
Quarter: 2020Q4

REPORT INFORMATION
  Report Type: Spontaneous
  Country: US (occurrence: US)
  Receive Date: 20201027
  Receipt Date: 20201027
  Transmission Date: 20210114
  Serious: No
  Sender: FDA-Public Use
  Company Number: US-ASTRAZENECA-2020SF26953

PATIENT
  Sex: Female

DRUGS (1)
  1. BYDUREON [Suspect]
     Active Substance: EXENATIDE
     Route: 065

REACTIONS (6)
  - Diarrhoea [Unknown]
  - Injection site mass [Unknown]
  - Laboratory test abnormal [Unknown]
  - Product use issue [Unknown]
  - Treatment noncompliance [Unknown]
  - Vomiting [Unknown]
